FAERS Safety Report 25469851 (Version 3)
Quarter: 2025Q3

REPORT INFORMATION
  Report Type: Other
  Country: US (occurrence: US)
  Receive Date: 20250623
  Receipt Date: 20250710
  Transmission Date: 20251021
  Serious: No
  Sender: TRAVERE THERAPEUTICS
  Company Number: US-TRAVERE-2025TVT00764

PATIENT
  Age: 72 Year
  Sex: Female

DRUGS (2)
  1. FILSPARI [Suspect]
     Active Substance: SPARSENTAN
     Indication: Product used for unknown indication
     Route: 048
     Dates: start: 20250429
  2. FILSPARI [Suspect]
     Active Substance: SPARSENTAN
     Route: 048
     Dates: start: 20250513

REACTIONS (9)
  - Lip dry [Unknown]
  - Dry mouth [None]
  - Dry throat [Unknown]
  - Headache [Unknown]
  - Cough [Unknown]
  - Sneezing [Unknown]
  - Feeling hot [Unknown]
  - Upper respiratory tract infection [Unknown]
  - Oral mucosal blistering [Unknown]

NARRATIVE: CASE EVENT DATE: 20250501
